FAERS Safety Report 17427690 (Version 3)
Quarter: 2020Q3

REPORT INFORMATION
  Report Type: Report from Study
  Country: None (occurrence: US)
  Receive Date: 20200217
  Receipt Date: 20200917
  Transmission Date: 20201102
  Serious: Yes (Hospitalization, Other)
  Sender: FDA-Public Use
  Company Number: US-ABBVIE-20P-163-3271321-00

PATIENT
  Age: 66 Year
  Sex: Male

DRUGS (3)
  1. IMBRUVICA [Suspect]
     Active Substance: IBRUTINIB
     Route: 048
     Dates: start: 20180418
  2. IMBRUVICA [Suspect]
     Active Substance: IBRUTINIB
     Indication: WALDENSTROM^S MACROGLOBULINAEMIA
     Route: 048
     Dates: start: 20180422
  3. COUMADIN [Suspect]
     Active Substance: WARFARIN SODIUM
     Indication: PRODUCT USED FOR UNKNOWN INDICATION
     Route: 065
     Dates: end: 202007

REACTIONS (13)
  - Sepsis [Unknown]
  - White blood cell count decreased [Recovering/Resolving]
  - Pneumonia [Unknown]
  - Carpal tunnel syndrome [Unknown]
  - Immunodeficiency [Unknown]
  - Platelet count decreased [Unknown]
  - Haematuria [Recovered/Resolved]
  - Nasopharyngitis [Unknown]
  - Atrial fibrillation [Unknown]
  - Productive cough [Unknown]
  - Hypophagia [Unknown]
  - Contusion [Unknown]
  - Platelet count decreased [Unknown]

NARRATIVE: CASE EVENT DATE: 20180418
